FAERS Safety Report 19090426 (Version 1)
Quarter: 2021Q2

REPORT INFORMATION
  Report Type: Spontaneous
  Country: CA (occurrence: CA)
  Receive Date: 20210405
  Receipt Date: 20210405
  Transmission Date: 20210717
  Serious: Yes (Life-Threatening, Other)
  Sender: FDA-Public Use
  Company Number: CA-AUROBINDO-AUR-APL-2021-013075

PATIENT
  Age: 56 Year
  Sex: Male
  Weight: 56 kg

DRUGS (2)
  1. METADOL (DICLOFENAC POTASSIUM\METAXALONE) [Interacting]
     Active Substance: DICLOFENAC POTASSIUM\METAXALONE
     Indication: SUBSTANCE ABUSE
     Dosage: 240 MILLIGRAM, ONCE A DAY
     Route: 048
  2. AZITHROMYCIN FOR INJECTION USP [Suspect]
     Active Substance: AZITHROMYCIN
     Indication: PNEUMONIA
     Dosage: 500 MILLIGRAM, ONCE A DAY
     Route: 042

REACTIONS (3)
  - Drug interaction [Unknown]
  - Electrocardiogram QT prolonged [Unknown]
  - Bradycardia [Unknown]
